FAERS Safety Report 8936808 (Version 2)
Quarter: 2013Q1

REPORT INFORMATION
  Report Type: Spontaneous
  Country: CO (occurrence: CO)
  Receive Date: 20121130
  Receipt Date: 20130228
  Transmission Date: 20140127
  Serious: Yes (Other)
  Sender: FDA-Public Use
  Company Number: CO-ROCHE-1162506

PATIENT
  Age: 86 Year
  Sex: Female

DRUGS (2)
  1. LUCENTIS [Suspect]
     Indication: EYE DISORDER
     Route: 050
     Dates: start: 20120822
  2. LUCENTIS [Suspect]
     Route: 050
     Dates: start: 20121022, end: 20121022

REACTIONS (2)
  - Hip fracture [Unknown]
  - Fall [Unknown]
